FAERS Safety Report 18576707 (Version 2)
Quarter: 2020Q4

REPORT INFORMATION
  Report Type: Spontaneous
  Country: US (occurrence: US)
  Receive Date: 20201203
  Receipt Date: 20201211
  Transmission Date: 20210114
  Serious: Yes (Other)
  Sender: FDA-Public Use
  Company Number: US-MALLINCKRODT-T202004603

PATIENT
  Age: 71 Year
  Sex: Female
  Weight: 113 kg

DRUGS (2)
  1. H.P. ACTHAR [Suspect]
     Active Substance: CORTICOTROPIN
     Indication: GLOMERULONEPHRITIS MEMBRANOUS
  2. H.P. ACTHAR [Suspect]
     Active Substance: CORTICOTROPIN
     Indication: NEPHROTIC SYNDROME
     Dosage: 80 UNITS/ 1 MILLILITER, EVERY 24-72 HOURS AS DIRECTED
     Route: 058
     Dates: start: 201912, end: 2020

REACTIONS (8)
  - Malaise [Not Recovered/Not Resolved]
  - Blood glucose increased [Recovered/Resolved]
  - Decreased appetite [Not Recovered/Not Resolved]
  - Lower respiratory tract infection [Not Recovered/Not Resolved]
  - Pneumonia [Not Recovered/Not Resolved]
  - Deep vein thrombosis [Unknown]
  - Hypersensitivity [Unknown]
  - COVID-19 [Not Recovered/Not Resolved]

NARRATIVE: CASE EVENT DATE: 202011
